FAERS Safety Report 6468565-6 (Version None)
Quarter: 2009Q4

REPORT INFORMATION
  Report Type: 
  Country: None (occurrence: None)
  Receive Date: 20091201
  Receipt Date: 20091117
  Transmission Date: 20100525
  Serious: Yes (Disabling)
  Sender: FDA-Public Use
  Company Number: 8044142

PATIENT
  Sex: Female

DRUGS (6)
  1. KEPPRA [Suspect]
     Dosage: 1500 MG D
     Dates: start: 20081201, end: 20090101
  2. KEPPRA [Suspect]
     Dosage: 1000 MG D
     Dates: start: 20090101
  3. EFFEXOR [Suspect]
     Dosage: 37.5 MG D PO
     Route: 048
  4. XELODA [Suspect]
     Dosage: 2 D PO
     Route: 048
  5. ATIVAN [Suspect]
  6. HERCEPTIN [Concomitant]

REACTIONS (6)
  - ANXIETY [None]
  - DIARRHOEA [None]
  - DIZZINESS [None]
  - GAIT DISTURBANCE [None]
  - PALMAR-PLANTAR ERYTHRODYSAESTHESIA SYNDROME [None]
  - SUICIDAL IDEATION [None]
